FAERS Safety Report 23654475 (Version 1)
Quarter: 2024Q1

REPORT INFORMATION
  Report Type: Spontaneous
  Country: US (occurrence: None)
  Receive Date: 20240320
  Receipt Date: 20240320
  Transmission Date: 20240410
  Serious: Yes (Hospitalization)
  Sender: FDA-Public Use
  Company Number: None

PATIENT
  Age: 77 Year
  Sex: Male
  Weight: 72.1 kg

DRUGS (5)
  1. FLUOROURACIL [Suspect]
     Active Substance: FLUOROURACIL
     Dates: end: 20240303
  2. CAMPTOSAR [Suspect]
     Active Substance: IRINOTECAN HYDROCHLORIDE
     Dates: end: 20240301
  3. LEUCOVORIN CALCIUM [Suspect]
     Active Substance: LEUCOVORIN CALCIUM
     Dates: end: 20240301
  4. NIVOLUMAB [Suspect]
     Active Substance: NIVOLUMAB
     Dates: end: 20240301
  5. ELOXATIN [Suspect]
     Active Substance: OXALIPLATIN
     Dates: end: 20240301

REACTIONS (7)
  - Muscular weakness [None]
  - Nausea [None]
  - Vomiting [None]
  - Diarrhoea [None]
  - Tachycardia [None]
  - Enteritis [None]
  - Enterocolitis [None]

NARRATIVE: CASE EVENT DATE: 20240311
